FAERS Safety Report 4807310-4 (Version None)
Quarter: 2005Q4

REPORT INFORMATION
  Report Type: 
  Country: None (occurrence: None)
  Receive Date: 20051020
  Receipt Date: 20051020
  Transmission Date: 20060501
  Serious: Yes (Hospitalization)
  Sender: FDA-Public Use
  Company Number: None

PATIENT
  Age: 76 Year
  Sex: Male

DRUGS (11)
  1. DIGOXIN [Suspect]
     Indication: ATRIAL FIBRILLATION
     Dosage: 0.25 MG QD
     Dates: start: 20050106
  2. SIMVASTATIN [Concomitant]
  3. IRBESARTAN [Concomitant]
  4. METOPROLOL [Concomitant]
  5. FELODIPINE [Concomitant]
  6. SILDENAFIL [Concomitant]
  7. HYDROCHLOROTHIAZIDE [Concomitant]
  8. RANITIDINE [Concomitant]
  9. GUAFENESIN [Concomitant]
  10. SLIM FAST [Concomitant]
  11. WARFARIN [Concomitant]

REACTIONS (3)
  - BRADYCARDIA [None]
  - DIARRHOEA [None]
  - HYPOKALAEMIA [None]
